FAERS Safety Report 7956247-0 (Version None)
Quarter: 2011Q4

REPORT INFORMATION
  Report Type: 
  Country: None (occurrence: None)
  Receive Date: 20111205
  Receipt Date: 20111125
  Transmission Date: 20120403
  Serious: No
  Sender: FDA-Public Use
  Company Number: DE-JNJFOC-20111111267

PATIENT
  Sex: Female

DRUGS (1)
  1. DURAGESIC-100 [Suspect]
     Indication: PRODUCT USED FOR UNKNOWN INDICATION
     Route: 062

REACTIONS (4)
  - PRODUCT ADHESION ISSUE [None]
  - APPLICATION SITE REACTION [None]
  - WRONG TECHNIQUE IN DRUG USAGE PROCESS [None]
  - APPLICATION SITE EXFOLIATION [None]
